FAERS Safety Report 9915535 (Version 2)
Quarter: 2014Q1

REPORT INFORMATION
  Report Type: Report from Study
  Country: ZA (occurrence: ZA)
  Receive Date: 20140221
  Receipt Date: 20140221
  Transmission Date: 20141002
  Serious: Yes (Death, Hospitalization, Other)
  Sender: FDA-Public Use
  Company Number: ZA-ROCHE-1106717

PATIENT
  Age: 48 Year
  Sex: Female

DRUGS (4)
  1. MIRCERA [Suspect]
     Indication: NEPHROGENIC ANAEMIA
     Route: 058
     Dates: start: 20120604
  2. MIRCERA [Suspect]
     Route: 058
     Dates: start: 20121120
  3. MIRCERA [Suspect]
     Route: 058
     Dates: start: 20130528
  4. MIRCERA [Suspect]
     Route: 058
     Dates: start: 20131025, end: 20140211

REACTIONS (2)
  - Chest pain [Unknown]
  - Death [Fatal]
